FAERS Safety Report 5010498-6 (Version None)
Quarter: 2006Q2

REPORT INFORMATION
  Report Type: 
  Country: None (occurrence: None)
  Receive Date: 20060525
  Receipt Date: 20051121
  Transmission Date: 20061013
  Serious: No
  Sender: FDA-Public Use
  Company Number: US-GLAXOSMITHKLINE-A0583392A

PATIENT
  Age: 39 Year
  Sex: Female

DRUGS (15)
  1. BACTROBAN [Suspect]
     Route: 045
     Dates: start: 20051117, end: 20051119
  2. FENTANYL [Concomitant]
  3. MAXALT [Concomitant]
  4. VYTORIN [Concomitant]
  5. NORCO [Concomitant]
  6. TENORMIN [Concomitant]
  7. KLONOPIN [Concomitant]
  8. ACIPHEX [Concomitant]
  9. SEROQUEL [Concomitant]
  10. ZOFRAN [Concomitant]
  11. AMBIEN [Concomitant]
  12. DAYPRO [Concomitant]
  13. TOPAMAX [Concomitant]
  14. FLURINOL [Concomitant]
  15. DESOXYN [Concomitant]

REACTIONS (1)
  - EPISTAXIS [None]
